FAERS Safety Report 7223002-9 (Version None)
Quarter: 2011Q1

REPORT INFORMATION
  Report Type: 
  Country: None (occurrence: None)
  Receive Date: 20110112
  Receipt Date: 20101223
  Transmission Date: 20110831
  Serious: No
  Sender: FDA-Public Use
  Company Number: US-B.I. PHARMACEUTICALS,INC./RIDGEFIELD-2010-BP-15411BP

PATIENT
  Age: 79 Year
  Sex: Male

DRUGS (7)
  1. CYCLOBENZAPRINE [Suspect]
     Indication: MUSCLE RELAXANT THERAPY
     Route: 048
     Dates: start: 20101215
  2. LIPITOR [Concomitant]
     Indication: BLOOD CHOLESTEROL INCREASED
     Dosage: 10 MG
     Route: 048
     Dates: start: 19950101
  3. LOVAZA [Concomitant]
     Indication: ROUTINE HEALTH MAINTENANCE
     Dosage: 1000 MG
     Route: 048
     Dates: start: 20060101
  4. CYCLOBENZAPRINE [Suspect]
     Indication: PAIN
  5. SOTALOL [Concomitant]
     Indication: CARDIAC DISORDER
     Dosage: 160 MG
     Route: 048
     Dates: start: 20101101
  6. PRADAXA [Suspect]
     Indication: ATRIAL FIBRILLATION
     Dosage: 300 MG
     Route: 048
     Dates: start: 20101215
  7. BENICAR [Concomitant]
     Indication: CARDIAC DISORDER
     Route: 048
     Dates: start: 19950101

REACTIONS (4)
  - INCREASED UPPER AIRWAY SECRETION [None]
  - COUGH [None]
  - EPISTAXIS [None]
  - WHEEZING [None]
